FAERS Safety Report 4424569-6 (Version None)
Quarter: 2004Q3

REPORT INFORMATION
  Report Type: 
  Country: None (occurrence: None)
  Receive Date: 20040809
  Receipt Date: 20040723
  Transmission Date: 20050211
  Serious: Yes (Hospitalization)
  Sender: FDA-Public Use
  Company Number: 2004IC000587

PATIENT
  Age: 51 Year
  Sex: Female

DRUGS (1)
  1. FLUOROURACIL [Suspect]
     Indication: GLAUCOMA
     Dosage: 5 MG; SUBCONJUNCTIVAL
     Route: 057

REACTIONS (4)
  - CONJUNCTIVAL BLEB [None]
  - EYE DISCHARGE [None]
  - INFECTION [None]
  - LACRIMATION INCREASED [None]
